FAERS Safety Report 5779822-0 (Version None)
Quarter: 2008Q2

REPORT INFORMATION
  Report Type: 
  Country: None (occurrence: None)
  Receive Date: 20080620
  Receipt Date: 20080520
  Transmission Date: 20081010
  Serious: Yes (Hospitalization, Other)
  Sender: FDA-Public Use
  Company Number: BE-BAYER-200815282GPV

PATIENT
  Age: 30 Year
  Sex: Female

DRUGS (2)
  1. MIRENA [Suspect]
     Indication: CONTRACEPTION
     Route: 015
     Dates: start: 20070117, end: 20080317
  2. VENTOLIN [Concomitant]
     Indication: ASTHMA

REACTIONS (3)
  - ACUTE ABDOMEN [None]
  - ECTOPIC PREGNANCY WITH INTRAUTERINE DEVICE [None]
  - INTRA-ABDOMINAL HAEMORRHAGE [None]
